FAERS Safety Report 4736281-4 (Version None)
Quarter: 2005Q3

REPORT INFORMATION
  Report Type: 
  Country: None (occurrence: None)
  Receive Date: 20050805
  Receipt Date: 20050805
  Transmission Date: 20060218
  Serious: Yes (Other)
  Sender: FDA-Public Use
  Company Number: None

PATIENT
  Age: 65 Year
  Sex: Female
  Weight: 56.246 kg

DRUGS (1)
  1. TEQUIN [Suspect]
     Indication: INFECTION
     Dosage: ONE TAB DAILY
     Dates: start: 20041129

REACTIONS (3)
  - FEELING ABNORMAL [None]
  - NAIL BED TENDERNESS [None]
  - PAIN [None]
